FAERS Safety Report 23112143 (Version 3)
Quarter: 2023Q4

REPORT INFORMATION
  Report Type: Spontaneous
  Country: PL (occurrence: None)
  Receive Date: 20231026
  Receipt Date: 20231226
  Transmission Date: 20240109
  Serious: Yes (Death)
  Sender: FDA-Public Use
  Company Number: PL-ROCHE-3446591

PATIENT
  Age: 14 Year
  Sex: Male
  Weight: 24 kg

DRUGS (1)
  1. EVRYSDI [Suspect]
     Active Substance: RISDIPLAM
     Indication: Spinal muscular atrophy
     Route: 048
     Dates: start: 20220928, end: 20231020

REACTIONS (1)
  - Catheter site haemorrhage [Fatal]
